FAERS Safety Report 20768257 (Version 1)
Quarter: 2022Q2

REPORT INFORMATION
  Report Type: Spontaneous
  Country: US (occurrence: US)
  Receive Date: 20220429
  Receipt Date: 20220429
  Transmission Date: 20220721
  Serious: Yes (Other)
  Sender: FDA-Public Use
  Company Number: US-SUN PHARMACEUTICAL INDUSTRIES LTD-2020R1-234333

PATIENT
  Age: 55 Year
  Sex: Female
  Weight: 92.517 kg

DRUGS (6)
  1. GLIPIZIDE [Suspect]
     Active Substance: GLIPIZIDE
     Indication: Type 2 diabetes mellitus
     Dosage: 2.5 MILLIGRAM, QD
     Route: 048
  2. GLIPIZIDE [Suspect]
     Active Substance: GLIPIZIDE
     Dosage: 5 MILLIGRAM, BID
     Route: 048
  3. GLIPIZIDE [Suspect]
     Active Substance: GLIPIZIDE
     Dosage: 10 MILLIGRAM, BID
     Route: 048
  4. LOSARTAN [Concomitant]
     Active Substance: LOSARTAN
     Indication: Hypertension
     Dosage: UNK
     Route: 048
  5. SITAGLIPTIN [Concomitant]
     Active Substance: SITAGLIPTIN
     Indication: Type 2 diabetes mellitus
     Dosage: 100 MILLIGRAM, QD
     Route: 048
  6. METFORMIN [Suspect]
     Active Substance: METFORMIN HYDROCHLORIDE
     Dosage: UNK
     Route: 065

REACTIONS (1)
  - Hypoglycaemia [Recovered/Resolved]
